FAERS Safety Report 7530764-X (Version None)
Quarter: 2011Q2

REPORT INFORMATION
  Report Type: 
  Country: None (occurrence: None)
  Receive Date: 20110607
  Receipt Date: 20110525
  Transmission Date: 20111010
  Serious: Yes (Hospitalization, Other)
  Sender: FDA-Public Use
  Company Number: US-CELGENEUS-163-21880-11053391

PATIENT
  Sex: Male
  Weight: 72.64 kg

DRUGS (19)
  1. ASPIRIN [Concomitant]
     Route: 065
  2. REVLIMID [Suspect]
     Indication: MULTIPLE MYELOMA
     Dosage: 25 MILLIGRAM
     Route: 048
     Dates: start: 20100801
  3. REMERON [Concomitant]
     Route: 065
  4. MEGACE [Concomitant]
     Route: 065
  5. HYDROCODONE BITARTRATE [Concomitant]
     Route: 065
  6. MIRALAX [Concomitant]
     Route: 065
  7. ZOFRAN [Concomitant]
     Route: 065
  8. VITAMIN D [Concomitant]
     Route: 065
  9. BISAC-EVAC SUP [Concomitant]
     Route: 065
  10. GLIMEPIRIDE [Concomitant]
     Route: 065
  11. CLOTRIMAZOLE [Concomitant]
     Route: 065
  12. SIMVASTATIN [Concomitant]
     Route: 065
  13. PROCHLORPERAZINE TAB [Concomitant]
     Route: 065
  14. EFFIENT [Concomitant]
     Route: 065
  15. REVLIMID [Suspect]
     Dosage: 10 MILLIGRAM
     Route: 048
     Dates: start: 20101001, end: 20110422
  16. CONGAPLEX [Concomitant]
     Route: 065
  17. AMIODARONE HCL [Concomitant]
     Route: 065
  18. VITAMIN B-12 [Concomitant]
     Route: 065
  19. STOOL SOFTENER [Concomitant]
     Route: 065

REACTIONS (5)
  - DEHYDRATION [None]
  - EYE INFLAMMATION [None]
  - CLOSTRIDIAL INFECTION [None]
  - ANAEMIA [None]
  - HEADACHE [None]
